FAERS Safety Report 4505560-8 (Version None)
Quarter: 2004Q4

REPORT INFORMATION
  Report Type: 
  Country: None (occurrence: None)
  Receive Date: 20041119
  Receipt Date: 20041008
  Transmission Date: 20050328
  Serious: No
  Sender: FDA-Public Use
  Company Number: US-GLAXOSMITHKLINE-A0529123A

PATIENT
  Age: 65 Year
  Sex: Male

DRUGS (6)
  1. AVODART [Suspect]
     Indication: ILL-DEFINED DISORDER
     Route: 048
     Dates: start: 20040909
  2. HYTRIN [Concomitant]
  3. ENALAPRIL [Concomitant]
  4. METFORMIN [Concomitant]
  5. PRIMIDONE [Concomitant]
  6. RYTHMOL [Concomitant]

REACTIONS (1)
  - HEART RATE INCREASED [None]
